FAERS Safety Report 6475206-0 (Version None)
Quarter: 2009Q4

REPORT INFORMATION
  Report Type: 
  Country: None (occurrence: None)
  Receive Date: 20091204
  Receipt Date: 20090508
  Transmission Date: 20100525
  Serious: Yes (Life-Threatening)
  Sender: FDA-Public Use
  Company Number: JP-ELI_LILLY_AND_COMPANY-JP200903004626

PATIENT
  Sex: Female
  Weight: 69 kg

DRUGS (4)
  1. ZYPREXA [Suspect]
     Indication: BIPOLAR I DISORDER
     Dosage: 20 MG, DAILY (1/D)
     Route: 048
     Dates: start: 20090225, end: 20090305
  2. BIBITTOACE [Concomitant]
     Indication: INSOMNIA
     Dosage: 1 MG, DAILY (1/D)
     Route: 048
     Dates: start: 20090225, end: 20090305
  3. SOFMIN AMEL /JPN/ [Concomitant]
     Indication: RESTLESSNESS
     Dosage: 25 MG, AS NEEDED
     Route: 048
     Dates: start: 20090226, end: 20090305
  4. NOLVADEX [Concomitant]
     Indication: BREAST CANCER
     Dosage: 20 MG, DAILY (1/D)
     Route: 048

REACTIONS (5)
  - NEGATIVISM [None]
  - NEUROLEPTIC MALIGNANT SYNDROME [None]
  - PNEUMONIA ASPIRATION [None]
  - RESTLESSNESS [None]
  - UPPER GASTROINTESTINAL HAEMORRHAGE [None]
